FAERS Safety Report 8114360-1 (Version None)
Quarter: 2012Q1

REPORT INFORMATION
  Report Type: 
  Country: None (occurrence: None)
  Receive Date: 20120206
  Receipt Date: 20120125
  Transmission Date: 20120608
  Serious: No
  Sender: FDA-Public Use
  Company Number: US-BIOGENIDEC-2012BI003143

PATIENT
  Age: 62 Year
  Sex: Female

DRUGS (4)
  1. AVONEX [Concomitant]
     Indication: MULTIPLE SCLEROSIS
     Route: 030
     Dates: start: 20090401
  2. TYSABRI [Suspect]
     Route: 042
     Dates: start: 20100916
  3. TYSABRI [Suspect]
     Indication: MULTIPLE SCLEROSIS
     Route: 042
     Dates: start: 20080423, end: 20080910
  4. AVONEX [Concomitant]
     Route: 030

REACTIONS (1)
  - LOWER RESPIRATORY TRACT INFECTION [None]
